FAERS Safety Report 9969748 (Version 2)
Quarter: 2014Q1

REPORT INFORMATION
  Report Type: Report from Study
  Country: US (occurrence: US)
  Receive Date: 20140306
  Receipt Date: 20140307
  Transmission Date: 20141002
  Serious: Yes (Hospitalization)
  Sender: FDA-Public Use
  Company Number: US-ROCHE-1360342

PATIENT
  Age: 65 Year
  Sex: Male

DRUGS (10)
  1. LUCENTIS [Suspect]
     Indication: EYE OEDEMA
     Dosage: LEFT EYE
     Route: 065
     Dates: start: 201211, end: 201311
  2. CLOPIDOGREL [Concomitant]
     Indication: MYOCARDIAL INFARCTION
     Route: 048
     Dates: start: 2001
  3. FUROSEMIDE [Concomitant]
     Route: 048
  4. LEVOTHYROXINE [Concomitant]
     Route: 048
  5. LISINOPRIL [Concomitant]
     Indication: BLOOD PRESSURE
     Dosage: 1 PILL TWO TIMES A DAY
     Route: 048
  6. NITROSTAT [Concomitant]
     Dosage: ^JUST IN CASE^, HAS NEVER NEEDED
     Route: 065
  7. HUMULIN N [Concomitant]
     Indication: DIABETES MELLITUS
     Dosage: SLIDING SCALE
     Route: 065
  8. RANITIDINE [Concomitant]
     Route: 048
  9. FENOFIBRATE [Concomitant]
     Indication: BLOOD CHOLESTEROL
     Route: 065
  10. PRAVASTATIN [Concomitant]
     Indication: BLOOD CHOLESTEROL
     Route: 048

REACTIONS (2)
  - Cataract operation [Recovered/Resolved]
  - Liver function test abnormal [Not Recovered/Not Resolved]
